FAERS Safety Report 16664404 (Version 1)
Quarter: 2019Q3

REPORT INFORMATION
  Report Type: Spontaneous
  Country: CA (occurrence: CA)
  Receive Date: 20190802
  Receipt Date: 20190802
  Transmission Date: 20191004
  Serious: Yes (Other)
  Sender: FDA-Public Use
  Company Number: CA-TEVA-2019-CA-1085029

PATIENT
  Age: 41 Year
  Sex: Female

DRUGS (21)
  1. METHOTREXATE. [Suspect]
     Active Substance: METHOTREXATE
     Indication: PRODUCT USED FOR UNKNOWN INDICATION
     Route: 065
  2. FENTANYL CITRATE INJECTION [Suspect]
     Active Substance: FENTANYL CITRATE
     Indication: PRODUCT USED FOR UNKNOWN INDICATION
     Route: 065
  3. VOLTAREN [Suspect]
     Active Substance: DICLOFENAC SODIUM
     Indication: PRODUCT USED FOR UNKNOWN INDICATION
     Route: 065
  4. COVERSYL /FRA/ [Concomitant]
     Active Substance: PERINDOPRIL
  5. COSENTYX [Suspect]
     Active Substance: SECUKINUMAB
     Indication: ANKYLOSING SPONDYLITIS
     Route: 058
  6. COSENTYX [Suspect]
     Active Substance: SECUKINUMAB
     Route: 058
  7. ALEVE [Concomitant]
     Active Substance: NAPROXEN SODIUM
  8. CELEBREX [Concomitant]
     Active Substance: CELECOXIB
  9. REMICADE [Concomitant]
     Active Substance: INFLIXIMAB
  10. ENBREL [Concomitant]
     Active Substance: ETANERCEPT
  11. NAPROXEN. [Concomitant]
     Active Substance: NAPROXEN
  12. HUMIRA [Concomitant]
     Active Substance: ADALIMUMAB
  13. IBUPROFEN. [Concomitant]
     Active Substance: IBUPROFEN
  14. ALLOPURINOL. [Concomitant]
     Active Substance: ALLOPURINOL
  15. DESOXIMETASONE. [Concomitant]
     Active Substance: DESOXIMETASONE
  16. GEMFIBROZIL. [Concomitant]
     Active Substance: GEMFIBROZIL
  17. SALAZOPYRIN [Concomitant]
     Active Substance: SULFASALAZINE
  18. INDOMETHACIN. [Suspect]
     Active Substance: INDOMETHACIN
     Indication: PRODUCT USED FOR UNKNOWN INDICATION
     Route: 065
  19. CIMZIA [Concomitant]
     Active Substance: CERTOLIZUMAB PEGOL
  20. SIMPONI [Concomitant]
     Active Substance: GOLIMUMAB
  21. SULFASALAZINE. [Concomitant]
     Active Substance: SULFASALAZINE

REACTIONS (9)
  - Gait disturbance [Not Recovered/Not Resolved]
  - Headache [Not Recovered/Not Resolved]
  - Bone density decreased [Not Recovered/Not Resolved]
  - Inflammation [Not Recovered/Not Resolved]
  - Bursitis [Not Recovered/Not Resolved]
  - Drug ineffective [Not Recovered/Not Resolved]
  - Neuralgia [Not Recovered/Not Resolved]
  - Feeling hot [Not Recovered/Not Resolved]
  - Tendonitis [Not Recovered/Not Resolved]
